FAERS Safety Report 6016032-6 (Version None)
Quarter: 2008Q4

REPORT INFORMATION
  Report Type: 
  Country: None (occurrence: None)
  Receive Date: 20081218
  Receipt Date: 20081208
  Transmission Date: 20090506
  Serious: Yes (Hospitalization)
  Sender: FDA-Public Use
  Company Number: DSA_32904_2008

PATIENT
  Age: 3 Year
  Sex: Female

DRUGS (1)
  1. ATIVAN [Suspect]
     Dosage: (6 MG QD, NOT THE PRESCRIBED AMOUNT ORAL)
     Route: 048
     Dates: start: 20080101, end: 20080101

REACTIONS (3)
  - ACCIDENTAL DRUG INTAKE BY CHILD [None]
  - ACCIDENTAL OVERDOSE [None]
  - NONSPECIFIC REACTION [None]
